FAERS Safety Report 6133769-9 (Version None)
Quarter: 2009Q1

REPORT INFORMATION
  Report Type: 
  Country: None (occurrence: None)
  Receive Date: 20090326
  Receipt Date: 20090317
  Transmission Date: 20090719
  Serious: Yes (Disabling, Other)
  Sender: FDA-Public Use
  Company Number: DE-PFIZER INC-2009177344

PATIENT

DRUGS (4)
  1. AROMASIN [Suspect]
     Indication: BREAST CANCER FEMALE
     Dosage: 1 TABLET/DAY
     Route: 048
     Dates: start: 20050101
  2. MICARDIS [Concomitant]
     Indication: HYPERTENSION
  3. ALISKIREN [Concomitant]
     Indication: HYPERTENSION
  4. CARMEN [Concomitant]
     Indication: HYPERTENSION

REACTIONS (1)
  - BLOOD PRESSURE INADEQUATELY CONTROLLED [None]
